FAERS Safety Report 24328141 (Version 1)
Quarter: 2024Q3

REPORT INFORMATION
  Report Type: Spontaneous
  Country: CN (occurrence: CN)
  Receive Date: 20240917
  Receipt Date: 20240917
  Transmission Date: 20241017
  Serious: Yes (Hospitalization, Other)
  Sender: PFIZER
  Company Number: CN-PFIZER INC-PV202400120958

PATIENT
  Age: 67 Year
  Sex: Male

DRUGS (2)
  1. ZYVOX [Suspect]
     Active Substance: LINEZOLID
     Indication: Spondylitis
     Dosage: 600 MG, ONE TABLET Q12H (EVERY 12 HOURS) AFTER MEALS
     Route: 048
     Dates: start: 20240720, end: 20240819
  2. ZYVOX [Suspect]
     Active Substance: LINEZOLID
     Indication: Anti-infective therapy

REACTIONS (4)
  - Platelet count decreased [Recovered/Resolved]
  - Vertebrobasilar insufficiency [Recovering/Resolving]
  - Off label use [Unknown]
  - Drug ineffective for unapproved indication [Unknown]

NARRATIVE: CASE EVENT DATE: 20240720
